FAERS Safety Report 12394831 (Version 2)
Quarter: 2016Q2

REPORT INFORMATION
  Report Type: Spontaneous
  Country: BR (occurrence: BR)
  Receive Date: 20160523
  Receipt Date: 20160606
  Transmission Date: 20160815
  Serious: Yes (Hospitalization, Other)
  Sender: FDA-Public Use
  Company Number: BR-AMGEN-BRASP2016063850

PATIENT
  Age: 59 Year
  Sex: Male
  Weight: 63 kg

DRUGS (19)
  1. AMLODIPINE [Concomitant]
     Active Substance: AMLODIPINE BESYLATE
     Dosage: UNK UNK, QD
  2. ONDANSETRON HYDROCHLORIDE. [Concomitant]
     Active Substance: ONDANSETRON HYDROCHLORIDE
     Dosage: 8 / 8H
  3. OMEPRAZOLE. [Concomitant]
     Active Substance: OMEPRAZOLE
     Dosage: UNK UNK, QD
  4. TECNOTECAN [Suspect]
     Active Substance: IRINOTECAN HYDROCHLORIDE
     Indication: PRODUCT USED FOR UNKNOWN INDICATION
     Dosage: 310 MG, Q2WK (14/14 DAYS)
     Route: 042
     Dates: start: 20151119, end: 20160429
  5. LEUCOVORIN                         /00566701/ [Concomitant]
     Active Substance: LEUCOVORIN
     Indication: COLON CANCER
     Dosage: UNK
     Dates: start: 20151119
  6. DIPYRONE [Concomitant]
     Active Substance: DIPYRONE
  7. 5-FU                               /00098801/ [Concomitant]
     Active Substance: FLUOROURACIL
     Dosage: 690 MG, UNK
     Route: 042
  8. 5-FU                               /00098801/ [Concomitant]
     Active Substance: FLUOROURACIL
     Dosage: 690 MG, UNK
     Route: 042
  9. AMIODARONE HYDROCHLORIDE. [Concomitant]
     Active Substance: AMIODARONE HYDROCHLORIDE
     Dosage: UNK UNK, QD
  10. ENALAPRIL [Concomitant]
     Active Substance: ENALAPRIL
     Dosage: UNK UNK, BID
  11. 5-FU                               /00098801/ [Concomitant]
     Active Substance: FLUOROURACIL
     Indication: COLON CANCER
     Dosage: 690 MG, UNK
     Route: 042
     Dates: start: 20151119
  12. IRINOTECAN [Concomitant]
     Active Substance: IRINOTECAN
  13. ASA [Concomitant]
     Active Substance: ASPIRIN
     Dosage: UNK UNK, QD
  14. BROMOPRIDE [Concomitant]
     Active Substance: BROMOPRIDE
     Dosage: 12 / 12H FOR 2 DAYS
  15. LOPERAMIDE [Concomitant]
     Active Substance: LOPERAMIDE
     Dosage: UNK
  16. NAPROXEN. [Concomitant]
     Active Substance: NAPROXEN
     Dosage: UNK UNK, QD
  17. VECTIBIX [Suspect]
     Active Substance: PANITUMUMAB
     Indication: PRODUCT USED FOR UNKNOWN INDICATION
     Dosage: 337.4 MG, Q2WK (14/14 DAYS)
     Route: 042
     Dates: start: 20151119, end: 20160429
  18. FAULDFLUOR [Suspect]
     Active Substance: FLUOROURACIL
     Indication: PRODUCT USED FOR UNKNOWN INDICATION
     Dosage: 4830 MG, Q2WK (14/14 DAYS)
     Route: 065
     Dates: start: 20151119, end: 20160429
  19. 5-FU                               /00098801/ [Concomitant]
     Active Substance: FLUOROURACIL
     Dosage: 690 MG, UNK
     Route: 042

REACTIONS (2)
  - Febrile neutropenia [Recovered/Resolved]
  - Herpes zoster [Recovered/Resolved]

NARRATIVE: CASE EVENT DATE: 20160507
